FAERS Safety Report 24674358 (Version 1)
Quarter: 2024Q4

REPORT INFORMATION
  Report Type: Spontaneous
  Country: US (occurrence: US)
  Receive Date: 20241128
  Receipt Date: 20241128
  Transmission Date: 20250114
  Serious: No
  Sender: GLAXOSMITHKLINE
  Company Number: US-GSK-US2024AMR136472

PATIENT
  Sex: Male

DRUGS (1)
  1. ALBUTEROL SULFATE [Suspect]
     Active Substance: ALBUTEROL SULFATE
     Indication: Bronchitis
     Dosage: 90 UG (18G/200 METERED )

REACTIONS (3)
  - Wrong technique in device usage process [Unknown]
  - Device issue [Unknown]
  - Product dose omission issue [Unknown]
